FAERS Safety Report 9557528 (Version 1)
Quarter: 2013Q3

REPORT INFORMATION
  Report Type: Spontaneous
  Country: GB (occurrence: None)
  Receive Date: 20130923
  Receipt Date: 20130923
  Transmission Date: 20140515
  Serious: Yes (Other)
  Sender: FDA-Public Use
  Company Number: KAD201309-001192

PATIENT
  Age: 54 Year
  Sex: Male

DRUGS (3)
  1. RIBAVIRIN [Suspect]
     Indication: HEPATITIS C
     Route: 048
     Dates: start: 20121008
  2. PEGINTERFERON ALFA-2B [Suspect]
     Indication: HEPATITIS C
     Dosage: INJECTION, 1 DF, WEEKLY, SUBCUTANEOUS
     Route: 058
     Dates: start: 20121008
  3. INCIVO [Suspect]
     Indication: HEPATITIS C
     Route: 048
     Dates: start: 20121008

REACTIONS (9)
  - Anaemia [None]
  - Rash [None]
  - Pain [None]
  - Nausea [None]
  - Lethargy [None]
  - Blood count abnormal [None]
  - Dyspnoea exertional [None]
  - Fatigue [None]
  - Post procedural complication [None]
